FAERS Safety Report 9364448 (Version 1)
Quarter: 2013Q2

REPORT INFORMATION
  Report Type: Spontaneous
  Country: IT (occurrence: IT)
  Receive Date: 20130624
  Receipt Date: 20130624
  Transmission Date: 20140414
  Serious: Yes (Hospitalization)
  Sender: FDA-Public Use
  Company Number: IT-BAYER-2013-073747

PATIENT
  Age: 25 Year
  Sex: Female

DRUGS (1)
  1. ACETYLSALICYLIC ACID [Suspect]
     Dosage: 40 G, ONCE
     Dates: start: 20130129, end: 20130129

REACTIONS (5)
  - Metabolic acidosis [Recovering/Resolving]
  - Tinnitus [Recovering/Resolving]
  - Vomiting [Recovering/Resolving]
  - Toxicity to various agents [Recovering/Resolving]
  - Drug abuse [None]
